FAERS Safety Report 23910347 (Version 1)
Quarter: 2024Q2

REPORT INFORMATION
  Report Type: Spontaneous
  Country: JP (occurrence: JP)
  Receive Date: 20240528
  Receipt Date: 20240528
  Transmission Date: 20240716
  Serious: Yes (Death)
  Sender: FDA-Public Use
  Company Number: JP-BAYER-2024A076551

PATIENT
  Age: 8 Decade
  Sex: Male

DRUGS (4)
  1. NUBEQA [Suspect]
     Active Substance: DAROLUTAMIDE
     Indication: Prostate cancer metastatic
     Dosage: UNK
  2. DOCETAXEL [Suspect]
     Active Substance: DOCETAXEL\DOCETAXEL ANHYDROUS
     Indication: Product used for unknown indication
     Dosage: UNK
  3. DEGARELIX [Suspect]
     Active Substance: DEGARELIX
     Indication: Product used for unknown indication
     Dosage: UNK
  4. LEUPROLIDE ACETATE [Suspect]
     Active Substance: ISOPROPYL ALCOHOL\LEUPROLIDE ACETATE
     Indication: Product used for unknown indication
     Dosage: UNK

REACTIONS (1)
  - Stevens-Johnson syndrome [Fatal]
